FAERS Safety Report 13819428 (Version 2)
Quarter: 2018Q1

REPORT INFORMATION
  Report Type: Report from Study
  Country: US (occurrence: US)
  Receive Date: 20170731
  Receipt Date: 20180201
  Transmission Date: 20180508
  Serious: No
  Sender: FDA-Public Use
  Company Number: US-EXELIXIS-CABO-17009061

PATIENT
  Age: 61 Year
  Sex: Male

DRUGS (8)
  1. ELIQUIS [Suspect]
     Active Substance: APIXABAN
     Indication: ANTICOAGULANT THERAPY
     Dosage: 2.5 MG, UNK
  2. ALLOPURINOL. [Concomitant]
     Active Substance: ALLOPURINOL
  3. ALPRAZOLAM. [Concomitant]
     Active Substance: ALPRAZOLAM
  4. MAGNESIUM [Concomitant]
     Active Substance: MAGNESIUM
  5. SELENIUM [Concomitant]
     Active Substance: SELENIUM
  6. MULTIVITAMINS [Concomitant]
     Active Substance: VITAMINS
  7. INDOMETHACIN. [Suspect]
     Active Substance: INDOMETHACIN
     Indication: PAIN
     Dosage: 1-2 CAPSULES, PRN
  8. CABOMETYX [Suspect]
     Active Substance: CABOZANTINIB S-MALATE
     Indication: RENAL CANCER
     Dosage: 60 MG, QD
     Route: 048
     Dates: start: 20161217

REACTIONS (6)
  - Upper respiratory tract infection [Unknown]
  - Foot deformity [Unknown]
  - Hyperhidrosis [Unknown]
  - Hyperkeratosis [Unknown]
  - Haemoptysis [Recovered/Resolved]
  - Erythema [Unknown]

NARRATIVE: CASE EVENT DATE: 20170503
